FAERS Safety Report 15600842 (Version 6)
Quarter: 2019Q3

REPORT INFORMATION
  Report Type: Report from Study
  Country: CN (occurrence: CN)
  Receive Date: 20181109
  Receipt Date: 20190703
  Transmission Date: 20191004
  Serious: Yes (Hospitalization)
  Sender: FDA-Public Use
  Company Number: CN-ROCHE-2210832

PATIENT
  Age: 70 Year
  Sex: Male
  Weight: 79.5 kg

DRUGS (29)
  1. PEMETREXED. [Suspect]
     Active Substance: PEMETREXED
     Indication: NON-SMALL CELL LUNG CANCER STAGE IV
     Dosage: 18/OCT/2018, MOST RECENT DOSE OF PEMETREXED PRIOR TO SAE ONSET 740 MG
     Route: 042
     Dates: start: 20180705
  2. AMOXICILLIN. [Concomitant]
     Active Substance: AMOXICILLIN
     Indication: MOUTH ULCERATION
     Route: 065
     Dates: end: 2018
  3. VITAMIN B2 [RIBOFLAVIN] [Concomitant]
     Indication: MOUTH ULCERATION
     Route: 065
     Dates: end: 2018
  4. PANTOPRAZOLE SODIUM. [Concomitant]
     Active Substance: PANTOPRAZOLE SODIUM
     Route: 065
     Dates: start: 20181020, end: 20181025
  5. TELMISARTAN. [Concomitant]
     Active Substance: TELMISARTAN
     Indication: HYPERTENSION
  6. LEVOFLOXACIN. [Concomitant]
     Active Substance: LEVOFLOXACIN
     Indication: MOUTH ULCERATION
     Route: 065
     Dates: end: 2018
  7. METOPROLOL TARTRATE. [Concomitant]
     Active Substance: METOPROLOL TARTRATE
     Route: 065
     Dates: start: 20181102
  8. ETORICOXIB. [Concomitant]
     Active Substance: ETORICOXIB
     Indication: PAIN
     Route: 065
     Dates: start: 20180726
  9. PANTOPRAZOLE SODIUM. [Concomitant]
     Active Substance: PANTOPRAZOLE SODIUM
     Route: 065
     Dates: start: 20180927, end: 20181002
  10. ATEZOLIZUMAB. [Suspect]
     Active Substance: ATEZOLIZUMAB
     Indication: NON-SMALL CELL LUNG CANCER STAGE IV
     Dosage: 18/OCT/2018, MOST RECENT DOSE OF ATEZOLIZUMAB TO SAE ONSET
     Route: 042
     Dates: start: 20180705
  11. VITAMIN C [Concomitant]
     Active Substance: ASCORBIC ACID
     Indication: MOUTH ULCERATION
     Route: 065
     Dates: end: 2018
  12. METOPROLOL TARTRATE. [Concomitant]
     Active Substance: METOPROLOL TARTRATE
     Indication: VOMITING
     Route: 065
     Dates: start: 20181020, end: 20181025
  13. FUROSEMIDE. [Concomitant]
     Active Substance: FUROSEMIDE
     Route: 065
     Dates: start: 20181017, end: 20181019
  14. AMIFOSTINE. [Concomitant]
     Active Substance: AMIFOSTINE
     Route: 065
     Dates: start: 20181018, end: 20181018
  15. SPIRONOLACTONE. [Concomitant]
     Active Substance: SPIRONOLACTONE
     Route: 065
     Dates: start: 20181017, end: 20181019
  16. ONDANSETRON HYDROCHLORIDE. [Concomitant]
     Active Substance: ONDANSETRON HYDROCHLORIDE
     Route: 065
     Dates: start: 20181020, end: 20181025
  17. PALONOSETRON HYDROCHLORIDE. [Concomitant]
     Active Substance: PALONOSETRON HYDROCHLORIDE
     Indication: VOMITING
     Route: 065
     Dates: start: 20181018, end: 20181018
  18. METOPROLOL. [Concomitant]
     Active Substance: METOPROLOL
     Indication: HYPERTENSION
     Route: 065
     Dates: start: 20181002
  19. ONDANSETRON HYDROCHLORIDE. [Concomitant]
     Active Substance: ONDANSETRON HYDROCHLORIDE
     Indication: NAUSEA
     Route: 065
     Dates: start: 20181001, end: 20181007
  20. CISPLATIN. [Suspect]
     Active Substance: CISPLATIN
     Indication: NON-SMALL CELL LUNG CANCER STAGE IV
     Dosage: 18/OCT/2018, MOST RECENT DOSE OF CISPLATIN PRIOR TO SAE ONSET 100 MG
     Route: 042
     Dates: start: 20180705
  21. BERBERINE [Concomitant]
     Active Substance: BERBERINE
     Indication: DIARRHOEA
     Route: 065
     Dates: end: 2018
  22. METOPROLOL TARTRATE. [Concomitant]
     Active Substance: METOPROLOL TARTRATE
     Indication: NAUSEA
     Route: 065
     Dates: start: 20181001, end: 20181007
  23. FORLAX [Concomitant]
     Active Substance: POLYETHYLENE GLYCOL 4000
     Indication: CONSTIPATION
     Route: 065
     Dates: start: 20181001, end: 20181005
  24. GLUTATHIONE REDUCED [Concomitant]
     Route: 065
     Dates: start: 20181018, end: 20181018
  25. APREPITANT. [Concomitant]
     Active Substance: APREPITANT
     Indication: VOMITING
     Route: 065
     Dates: start: 20181018, end: 20181020
  26. NORFLOXACIN [Concomitant]
     Active Substance: NORFLOXACIN
     Indication: DIARRHOEA
     Route: 065
     Dates: end: 2018
  27. MONTMORILLONITE [Concomitant]
     Active Substance: MONTMORILLONITE
     Indication: DIARRHOEA
     Route: 065
     Dates: end: 2018
  28. AZITHROMYCIN ANHYDROUS. [Concomitant]
     Active Substance: AZITHROMYCIN ANHYDROUS
     Indication: MOUTH ULCERATION
     Route: 065
     Dates: end: 2018
  29. PANTOPRAZOLE SODIUM. [Concomitant]
     Active Substance: PANTOPRAZOLE SODIUM
     Route: 065
     Dates: start: 20181018, end: 20181018

REACTIONS (1)
  - Platelet count decreased [Recovered/Resolved]

NARRATIVE: CASE EVENT DATE: 20181101
